FAERS Safety Report 4285695-8 (Version None)
Quarter: 2004Q1

REPORT INFORMATION
  Report Type: 
  Country: None (occurrence: None)
  Receive Date: 20040203
  Receipt Date: 20040122
  Transmission Date: 20041129
  Serious: Yes (Other)
  Sender: FDA-Public Use
  Company Number: HQWYE532322JAN04

PATIENT
  Sex: 0

DRUGS (1)
  1. CORDAREX (AMIODARONE, UNSPEC) [Suspect]

REACTIONS (3)
  - ABDOMINAL DISCOMFORT [None]
  - LUNG INFILTRATION [None]
  - PYREXIA [None]
